FAERS Safety Report 19359664 (Version 2)
Quarter: 2021Q2

REPORT INFORMATION
  Report Type: Spontaneous
  Country: GB (occurrence: GB)
  Receive Date: 20210601
  Receipt Date: 20210611
  Transmission Date: 20210717
  Serious: Yes (Other)
  Sender: FDA-Public Use
  Company Number: GB-REGENERON PHARMACEUTICALS, INC.-2021-50371

PATIENT

DRUGS (1)
  1. EYLEA [Suspect]
     Active Substance: AFLIBERCEPT
     Indication: RETINAL VEIN OCCLUSION
     Dosage: 1 DF, ONCE, LEFT EYE, 6 EYLEA INJECTIONS IN TOTAL  WERE ADMINISTERED BEFORE THE EVENT
     Route: 031
     Dates: start: 20201126, end: 20201126

REACTIONS (4)
  - Intraocular pressure increased [Recovered/Resolved]
  - Blindness transient [Recovered/Resolved with Sequelae]
  - Retinal artery occlusion [Unknown]
  - Device use issue [Unknown]

NARRATIVE: CASE EVENT DATE: 20201126
